FAERS Safety Report 8760947 (Version 3)
Quarter: 2013Q2

REPORT INFORMATION
  Report Type: Report from Study
  Country: JP (occurrence: JP)
  Receive Date: 20120830
  Receipt Date: 20130412
  Transmission Date: 20140414
  Serious: Yes (Other)
  Sender: FDA-Public Use
  Company Number: PHHY2012JP074505

PATIENT
  Age: 33 Year
  Sex: Female

DRUGS (16)
  1. FTY 720 [Suspect]
     Indication: MULTIPLE SCLEROSIS RELAPSE
     Dosage: 0.5 MG, UNK
     Route: 048
     Dates: start: 20120224
  2. SOLU-MEDROL [Concomitant]
     Dosage: 1000 MG, UNK
     Route: 051
     Dates: start: 20100701, end: 20100703
  3. SOLU-MEDROL [Concomitant]
     Dosage: 1000 MG, UNK
     Route: 051
     Dates: start: 20111125, end: 20111127
  4. SOLU-MEDROL [Concomitant]
     Dosage: 1000 MG, UNK
     Route: 051
     Dates: start: 20120210, end: 20120212
  5. SOLU-MEDROL [Concomitant]
     Dosage: 1000 MG, UNK
     Route: 051
     Dates: start: 20120225, end: 20120227
  6. CYMBALTA [Concomitant]
     Dosage: 20 MG, UNK
     Route: 048
     Dates: start: 20120330
  7. TEGRETOL [Concomitant]
     Dosage: 100 MG, UNK
     Route: 048
     Dates: start: 20120511, end: 20120802
  8. TEGRETOL [Concomitant]
     Dosage: 200 MG, UNK
     Route: 048
     Dates: start: 20120803
  9. OMEPRAZOLE [Concomitant]
     Dosage: 30 MG, UNK
     Route: 048
     Dates: end: 20120330
  10. MAGLAX [Concomitant]
     Dosage: 3000 MG, UNK
     Route: 048
  11. PURSENNID [Concomitant]
     Dosage: 60 MG, UNK
     Route: 048
  12. CLARITIN [Concomitant]
     Dosage: 10 MG, UNK
     Route: 048
  13. MYSLEE [Concomitant]
     Dosage: 10 MG, UNK
     Route: 048
  14. LAXOBERON [Concomitant]
     Dosage: UNK
     Route: 048
  15. GASMOTIN [Concomitant]
     Dosage: 15 MG, UNK
     Route: 048
  16. TAKEPRON [Concomitant]
     Dosage: 30 MG, UNK
     Route: 048

REACTIONS (2)
  - Clonus [Recovering/Resolving]
  - Headache [Recovering/Resolving]
